FAERS Safety Report 18456509 (Version 1)
Quarter: 2020Q4

REPORT INFORMATION
  Report Type: Spontaneous
  Country: US (occurrence: US)
  Receive Date: 20201103
  Receipt Date: 20201103
  Transmission Date: 20210114
  Serious: Yes (Other)
  Sender: FDA-Public Use
  Company Number: US-SHILPA MEDICARE LIMITED-SML-US-2020-00522

PATIENT
  Age: 33 Year
  Sex: Female

DRUGS (6)
  1. VENETOCLAX. [Suspect]
     Active Substance: VENETOCLAX
     Dosage: DOSE ESCALATION ON DAY 3
  2. VENETOCLAX. [Suspect]
     Active Substance: VENETOCLAX
     Indication: ACUTE MYELOID LEUKAEMIA
     Dosage: DAY 1
     Route: 065
  3. AZACITIDINE, UNKNOWN [Suspect]
     Active Substance: AZACITIDINE
     Indication: ACUTE MYELOID LEUKAEMIA
     Dosage: 50 PERCENT DOSE REDUCTION (37.5 MG/M2) INTRAVENOUSLY FOR FIVE DAYS
     Route: 042
  4. VENETOCLAX. [Suspect]
     Active Substance: VENETOCLAX
     Dosage: ON DAY 5 AT THE TIME OF DISCHARGE TO 28 DAYS OF A 28 DAY TREATMENT CYCLE.
  5. VENETOCLAX. [Suspect]
     Active Substance: VENETOCLAX
     Dosage: DOSE ESCALATION ON DAY 2
  6. VENETOCLAX. [Suspect]
     Active Substance: VENETOCLAX
     Dosage: AFTER A 12-DAY PERIOD OFF ALL THERAPY, THE PATIENT STARTED A SECOND TREATMENT CYCLE VENETOCLAX WAS R

REACTIONS (3)
  - Cytopenia [Recovered/Resolved]
  - Pulmonary embolism [Unknown]
  - Off label use [Unknown]
